FAERS Safety Report 9143811 (Version 1)
Quarter: 2013Q1

REPORT INFORMATION
  Report Type: Spontaneous
  Country: NO (occurrence: NO)
  Receive Date: 20130306
  Receipt Date: 20130306
  Transmission Date: 20140127
  Serious: Yes (Other)
  Sender: FDA-Public Use
  Company Number: NO-ROCHE-1197290

PATIENT
  Sex: Female

DRUGS (1)
  1. LARIAM [Suspect]
     Indication: PROPHYLAXIS
     Route: 065

REACTIONS (4)
  - Drug ineffective [Unknown]
  - Hallucination [Unknown]
  - Nightmare [Unknown]
  - Depression [Not Recovered/Not Resolved]
